FAERS Safety Report 7308073-3 (Version None)
Quarter: 2011Q1

REPORT INFORMATION
  Report Type: 
  Country: None (occurrence: None)
  Receive Date: 20110223
  Receipt Date: 20100928
  Transmission Date: 20110831
  Serious: Yes (Other)
  Sender: FDA-Public Use
  Company Number: US-BAYER-201030280NA

PATIENT
  Sex: Female
  Weight: 65.76 kg

DRUGS (6)
  1. CALCIUM [Concomitant]
     Dosage: 600 MG, UNK
     Route: 048
  2. LODINE [Concomitant]
     Dosage: 400 MG, BID
     Route: 048
     Dates: start: 20080804, end: 20080807
  3. YASMIN [Suspect]
     Indication: ORAL CONTRACEPTION
     Dosage: UNK UNK, UNK
     Route: 048
     Dates: start: 20060501, end: 20080701
  4. RESTASIS [Concomitant]
     Indication: DRY EYE
     Dosage: UNK
     Dates: start: 20070101, end: 20100101
  5. TESTOSTERONE [Concomitant]
  6. ADDERALL 10 [Concomitant]
     Indication: ATTENTION DEFICIT/HYPERACTIVITY DISORDER
     Dosage: UNK
     Route: 048
     Dates: start: 20070101, end: 20100101

REACTIONS (4)
  - DEEP VEIN THROMBOSIS [None]
  - PAIN IN EXTREMITY [None]
  - OEDEMA PERIPHERAL [None]
  - DISCOMFORT [None]
